FAERS Safety Report 10175048 (Version 1)
Quarter: 2014Q2

REPORT INFORMATION
  Report Type: Spontaneous
  Country: US (occurrence: US)
  Receive Date: 20140515
  Receipt Date: 20140515
  Transmission Date: 20141212
  Serious: Yes (Hospitalization)
  Sender: FDA-Public Use
  Company Number: US-INCYTE CORPORATION-2014IN001213

PATIENT
  Age: 77 Year
  Sex: Female

DRUGS (14)
  1. JAKAFI [Suspect]
     Indication: BONE MARROW DISORDER
     Dosage: 10 MG, BID
     Route: 048
     Dates: start: 20140417, end: 20140421
  2. JAKAFI [Suspect]
     Indication: WHITE BLOOD CELL COUNT INCREASED
  3. JAKAFI [Suspect]
     Indication: PLATELET COUNT INCREASED
  4. CARDIZEM                           /00489701/ [Concomitant]
  5. LASIX                              /00032601/ [Concomitant]
  6. JANTOVEN [Concomitant]
  7. PRAVASTATIN [Concomitant]
  8. POTASSIUM CHLORIDE [Concomitant]
  9. METOPROLOL [Concomitant]
  10. LISINOPRIL [Concomitant]
  11. TYLENOL PM [Concomitant]
  12. ASPIRIN [Concomitant]
  13. FISH OIL [Concomitant]
  14. TUSSIN COUGH [Concomitant]

REACTIONS (1)
  - Cardiac failure congestive [Recovering/Resolving]
